FAERS Safety Report 10033680 (Version 1)
Quarter: 2014Q1

REPORT INFORMATION
  Report Type: Spontaneous
  Country: US (occurrence: US)
  Receive Date: 20140325
  Receipt Date: 20140325
  Transmission Date: 20141002
  Serious: No
  Sender: FDA-Public Use
  Company Number: US-BIOGENIDEC-2014BI024063

PATIENT
  Sex: Male

DRUGS (7)
  1. TECFIDERA [Suspect]
     Indication: MULTIPLE SCLEROSIS
     Route: 048
     Dates: start: 201312
  2. AMPYRA [Concomitant]
  3. FINASTERIDE [Concomitant]
  4. LANTUS [Concomitant]
  5. TAMSULOSIN [Concomitant]
  6. BACLOFEN [Concomitant]
  7. APIDRA [Concomitant]

REACTIONS (2)
  - Feeling abnormal [Unknown]
  - Mood altered [Unknown]
